FAERS Safety Report 6574443-4 (Version None)
Quarter: 2010Q1

REPORT INFORMATION
  Report Type: 
  Country: None (occurrence: None)
  Receive Date: 20100209
  Receipt Date: 20090123
  Transmission Date: 20100710
  Serious: No
  Sender: FDA-Public Use
  Company Number: A0763233A

PATIENT
  Sex: Male

DRUGS (2)
  1. PAROXETINE HYDROCHLORIDE [Suspect]
     Indication: DRUG USE FOR UNKNOWN INDICATION
     Dosage: 30MG IN THE MORNING
     Route: 048
  2. PAROXETINE HYDROCHLORIDE [Suspect]
     Dosage: 30MG IN THE MORNING
     Route: 048

REACTIONS (3)
  - ABDOMINAL DISCOMFORT [None]
  - DRUG INEFFECTIVE [None]
  - PRODUCT QUALITY ISSUE [None]
